FAERS Safety Report 5007975-0 (Version None)
Quarter: 2006Q2

REPORT INFORMATION
  Report Type: 
  Country: None (occurrence: None)
  Receive Date: 20060518
  Receipt Date: 20060511
  Transmission Date: 20061013
  Serious: Yes (Death, Life-Threatening)
  Sender: FDA-Public Use
  Company Number: CN-2006-011336

PATIENT
  Age: 76 Year
  Sex: Male

DRUGS (3)
  1. ULTRAVIST 300 [Suspect]
     Indication: COMPUTERISED TOMOGRAM
     Dosage: 90 ML, 1 DOSE, INTRAVENOUS
     Route: 042
     Dates: start: 20060511, end: 20060511
  2. IODINE (IODINE) [Concomitant]
  3. DEXAMETHASONE TAB [Concomitant]

REACTIONS (6)
  - ANAPHYLACTIC SHOCK [None]
  - CARDIAC FIBRILLATION [None]
  - DYSPNOEA [None]
  - FOAMING AT MOUTH [None]
  - HYPOTENSION [None]
  - RASH [None]
